FAERS Safety Report 18139437 (Version 1)
Quarter: 2020Q3

REPORT INFORMATION
  Report Type: Spontaneous
  Country: IE (occurrence: IE)
  Receive Date: 20200812
  Receipt Date: 20200812
  Transmission Date: 20201103
  Serious: Yes (Other)
  Sender: FDA-Public Use
  Company Number: IE-MYLANLABS-2020M1069701

PATIENT

DRUGS (8)
  1. FLUCLOXACILLIN [Suspect]
     Active Substance: FLUCLOXACILLIN
     Indication: BLISTER
     Dosage: UNK
     Route: 048
  2. DICLOFENAC [Suspect]
     Active Substance: DICLOFENAC
     Indication: PRODUCT USED FOR UNKNOWN INDICATION
     Dosage: 10 MILLIGRAM PER GRAM (10 MG/G, UNKNOWN)
     Route: 061
  3. BETAMETHASONE. [Suspect]
     Active Substance: BETAMETHASONE
     Indication: RASH PRURITIC
     Dosage: UNK
     Route: 061
  4. TERBINAFINE. [Suspect]
     Active Substance: TERBINAFINE
     Indication: RASH PRURITIC
     Dosage: UNK
     Route: 065
  5. TERBINAFINE. [Suspect]
     Active Substance: TERBINAFINE
     Indication: BLISTER
  6. BETAMETHASONE. [Suspect]
     Active Substance: BETAMETHASONE
     Indication: BLISTER
  7. FLUCLOXACILLIN [Suspect]
     Active Substance: FLUCLOXACILLIN
     Indication: RASH PRURITIC
  8. BETAMETHASONE. [Suspect]
     Active Substance: BETAMETHASONE
     Indication: RASH PRURITIC

REACTIONS (12)
  - Blister [Recovered/Resolved]
  - Acantholysis [Recovered/Resolved]
  - Skin erosion [Recovered/Resolved]
  - Scab [Recovered/Resolved]
  - Rash pruritic [Recovered/Resolved]
  - Rash erythematous [Recovered/Resolved]
  - Rash papulosquamous [Recovered/Resolved]
  - Subcorneal pustular dermatosis [Recovered/Resolved]
  - Pemphigus [Recovered/Resolved]
  - Therapeutic product effect incomplete [Unknown]
  - Skin disorder [Recovered/Resolved]
  - Rash [Recovered/Resolved]
